FAERS Safety Report 6221956-0 (Version None)
Quarter: 2009Q2

REPORT INFORMATION
  Report Type: 
  Country: None (occurrence: None)
  Receive Date: 20090608
  Receipt Date: 20090608
  Transmission Date: 20091009
  Serious: Yes (Life-Threatening)
  Sender: FDA-Public Use
  Company Number: None

PATIENT
  Sex: Male
  Weight: 106 kg

DRUGS (1)
  1. IRON DEXTRAN [Suspect]
     Dosage: IV
     Route: 042
     Dates: start: 20090505

REACTIONS (1)
  - ANAPHYLACTIC SHOCK [None]
